FAERS Safety Report 20525541 (Version 1)
Quarter: 2022Q1

REPORT INFORMATION
  Report Type: Spontaneous
  Country: GB (occurrence: GB)
  Receive Date: 20220228
  Receipt Date: 20220228
  Transmission Date: 20220423
  Serious: Yes (Other)
  Sender: FDA-Public Use
  Company Number: GB-MHRA-MED-202202101635111540-SI1UX

PATIENT
  Age: 37 Year
  Sex: Female

DRUGS (1)
  1. LYUMJEV [Suspect]
     Active Substance: INSULIN LISPRO-AABC
     Indication: Type 1 diabetes mellitus
     Dosage: UNK, UNKNOWN
     Route: 065
     Dates: start: 20211207, end: 20220128

REACTIONS (3)
  - Headache [Recovered/Resolved]
  - Dizziness [Unknown]
  - Nausea [Unknown]

NARRATIVE: CASE EVENT DATE: 20211212
